FAERS Safety Report 19336954 (Version 2)
Quarter: 2021Q3

REPORT INFORMATION
  Report Type: Spontaneous
  Country: US (occurrence: US)
  Receive Date: 20210530
  Receipt Date: 20210730
  Transmission Date: 20211014
  Serious: No
  Sender: FDA-Public Use
  Company Number: US-JNJFOC-20210541260

PATIENT
  Age: 77 Year
  Sex: Male
  Weight: 81.72 kg

DRUGS (11)
  1. LISINOPRIL. [Concomitant]
     Active Substance: LISINOPRIL
     Route: 048
  2. ELIQUIS [Concomitant]
     Active Substance: APIXABAN
     Route: 048
  3. FINASTERIDE. [Concomitant]
     Active Substance: FINASTERIDE
     Route: 048
  4. LISINOPRIL. [Concomitant]
     Active Substance: LISINOPRIL
  5. ROSUVASTATIN. [Concomitant]
     Active Substance: ROSUVASTATIN
     Route: 048
  6. TAMSULOSIN [Concomitant]
     Active Substance: TAMSULOSIN
     Route: 048
  7. STELARA [Suspect]
     Active Substance: USTEKINUMAB
     Indication: COLITIS ULCERATIVE
     Route: 058
     Dates: start: 20210105
  8. ASPRIN [Concomitant]
     Active Substance: ASPIRIN
     Route: 048
     Dates: start: 20170915
  9. STELARA [Suspect]
     Active Substance: USTEKINUMAB
  10. ALLOPURINOL. [Concomitant]
     Active Substance: ALLOPURINOL
     Route: 048
  11. LEVOTHYROXINE. [Concomitant]
     Active Substance: LEVOTHYROXINE
     Dosage: 25 MCG
     Route: 048

REACTIONS (2)
  - Inappropriate schedule of product administration [Unknown]
  - Off label use [Unknown]

NARRATIVE: CASE EVENT DATE: 20210520
